FAERS Safety Report 25542360 (Version 1)
Quarter: 2025Q3

REPORT INFORMATION
  Report Type: Spontaneous
  Country: KR (occurrence: KR)
  Receive Date: 20250711
  Receipt Date: 20250711
  Transmission Date: 20251020
  Serious: Yes (Other)
  Sender: UCB
  Company Number: KR-UCBSA-2025041691

PATIENT
  Sex: Male
  Weight: 48 kg

DRUGS (1)
  1. KEPPRA [Suspect]
     Active Substance: LEVETIRACETAM
     Indication: Leukopenia
     Dosage: 2 DOSAGE FORM, 2X/DAY (BID)
     Route: 048
     Dates: start: 20241031, end: 20241031

REACTIONS (1)
  - Leukopenia [Recovered/Resolved]

NARRATIVE: CASE EVENT DATE: 20241102
